FAERS Safety Report 20222063 (Version 1)
Quarter: 2021Q4

REPORT INFORMATION
  Report Type: Spontaneous
  Country: US (occurrence: None)
  Receive Date: 20211222
  Receipt Date: 20211222
  Transmission Date: 20220303
  Serious: Yes (Hospitalization)
  Sender: FDA-Public Use
  Company Number: None

PATIENT
  Age: 76 Year
  Sex: Male
  Weight: 97.2 kg

DRUGS (18)
  1. ERLEADA [Suspect]
     Active Substance: APALUTAMIDE
     Indication: Prostate cancer
     Dosage: FREQUENCY : DAILY;?
     Route: 048
  2. BYSTOLIC [Concomitant]
     Active Substance: NEBIVOLOL HYDROCHLORIDE
  3. Ezetimibe-Simvastatin 10-20mg [Concomitant]
  4. LOSARTAN [Concomitant]
     Active Substance: LOSARTAN
  5. ASPIRIN [Concomitant]
     Active Substance: ASPIRIN
  6. PREDNISONE [Concomitant]
     Active Substance: PREDNISONE
  7. OXYBUTYNIN [Concomitant]
     Active Substance: OXYBUTYNIN
  8. Lupron Depot 45mg [Concomitant]
  9. XGEVA [Concomitant]
     Active Substance: DENOSUMAB
  10. ALLOPURINOL [Concomitant]
     Active Substance: ALLOPURINOL
  11. AMITRIPTYLINE [Concomitant]
     Active Substance: AMITRIPTYLINE
  12. FENTANYL [Concomitant]
     Active Substance: FENTANYL
  13. FUROSEMIDE [Concomitant]
     Active Substance: FUROSEMIDE
  14. Metoprolol succinate ER 25mg [Concomitant]
  15. MYRBETRIQ [Concomitant]
     Active Substance: MIRABEGRON
  16. Senna Lax 8.6mg [Concomitant]
  17. ZYRTEC [Concomitant]
     Active Substance: CETIRIZINE HYDROCHLORIDE
  18. OXYCODONE [Concomitant]
     Active Substance: OXYCODONE

REACTIONS (1)
  - Rales [None]

NARRATIVE: CASE EVENT DATE: 20211222
